FAERS Safety Report 12801985 (Version 1)
Quarter: 2016Q4

REPORT INFORMATION
  Report Type: Spontaneous
  Country: US (occurrence: US)
  Receive Date: 20161003
  Receipt Date: 20161003
  Transmission Date: 20170207
  Serious: No
  Sender: FDA-Public Use
  Company Number: US-JAZZ-2016-US-012034

PATIENT
  Sex: Female

DRUGS (29)
  1. NICORETTE [Concomitant]
     Active Substance: NICOTINE
  2. CLIMARA [Concomitant]
     Active Substance: ESTRADIOL
  3. SINGULAIR [Concomitant]
     Active Substance: MONTELUKAST SODIUM
  4. LAMICTAL [Concomitant]
     Active Substance: LAMOTRIGINE
  5. PROMETRIUM [Concomitant]
     Active Substance: PROGESTERONE
  6. WELLBUTRIN [Concomitant]
     Active Substance: BUPROPION HYDROCHLORIDE
  7. CALCIUM +D [Concomitant]
     Active Substance: CALCIUM\VITAMIN D
  8. PREDNISONE. [Concomitant]
     Active Substance: PREDNISONE
  9. TIZANIDINE HCL [Concomitant]
     Active Substance: TIZANIDINE HYDROCHLORIDE
  10. LIDODERM [Concomitant]
     Active Substance: LIDOCAINE
  11. QVAR [Concomitant]
     Active Substance: BECLOMETHASONE DIPROPIONATE
  12. HYDROQUINONE. [Concomitant]
     Active Substance: HYDROQUINONE
  13. MODAFINIL. [Concomitant]
     Active Substance: MODAFINIL
  14. FLONASE [Concomitant]
     Active Substance: FLUTICASONE PROPIONATE
  15. HYDROCORTISONE. [Concomitant]
     Active Substance: HYDROCORTISONE
  16. VOLTAREN [Concomitant]
     Active Substance: DICLOFENAC SODIUM
  17. MULTIVITAMINS [Concomitant]
     Active Substance: VITAMINS
  18. XYREM [Suspect]
     Active Substance: SODIUM OXYBATE
     Indication: FIBROMYALGIA
     Dosage: 4.5 G, BID
     Route: 048
     Dates: start: 200812, end: 201006
  19. EPIPEN [Concomitant]
     Active Substance: EPINEPHRINE
  20. PERCOCET [Concomitant]
     Active Substance: ACETAMINOPHEN\OXYCODONE HYDROCHLORIDE
  21. NABUMETONE. [Concomitant]
     Active Substance: NABUMETONE
  22. GABAPENTIN. [Concomitant]
     Active Substance: GABAPENTIN
  23. RITALIN [Concomitant]
     Active Substance: METHYLPHENIDATE HYDROCHLORIDE
  24. XYREM [Suspect]
     Active Substance: SODIUM OXYBATE
     Dosage: 3 G, BID
     Route: 048
     Dates: start: 201006
  25. ABILIFY [Concomitant]
     Active Substance: ARIPIPRAZOLE
  26. ALBUTEROL SULFATE. [Concomitant]
     Active Substance: ALBUTEROL SULFATE
  27. CYMBALTA [Concomitant]
     Active Substance: DULOXETINE HYDROCHLORIDE
  28. NICOTINE. [Concomitant]
     Active Substance: NICOTINE
  29. VITAMIN D2 [Concomitant]
     Active Substance: ERGOCALCIFEROL

REACTIONS (1)
  - Fatigue [Not Recovered/Not Resolved]
